FAERS Safety Report 6993088-5 (Version None)
Quarter: 2010Q3

REPORT INFORMATION
  Report Type: 
  Country: None (occurrence: None)
  Receive Date: 20100917
  Receipt Date: 20091112
  Transmission Date: 20110219
  Serious: No
  Sender: FDA-Public Use
  Company Number: US-ASTRAZENECA-2009SE26170

PATIENT
  Sex: Female

DRUGS (6)
  1. SEROQUEL [Suspect]
     Indication: DEPRESSION
     Route: 048
  2. SEROQUEL [Suspect]
     Indication: SLEEP DISORDER
     Route: 048
  3. LORCET-HD [Concomitant]
  4. BENADRYL [Concomitant]
  5. TYLENOL PM [Concomitant]
  6. AZO [Concomitant]
     Indication: URINARY TRACT INFECTION

REACTIONS (3)
  - DRUG DOSE OMISSION [None]
  - DRUG SCREEN POSITIVE [None]
  - MEDICATION ERROR [None]
